FAERS Safety Report 15852828 (Version 2)
Quarter: 2019Q1

REPORT INFORMATION
  Report Type: Spontaneous
  Country: PT (occurrence: PT)
  Receive Date: 20190122
  Receipt Date: 20190123
  Transmission Date: 20190417
  Serious: Yes (Other)
  Sender: FDA-Public Use
  Company Number: PHHY2019PT008292

PATIENT
  Age: 54 Year
  Sex: Female

DRUGS (2)
  1. IBUPROFEN. [Suspect]
     Active Substance: IBUPROFEN
     Indication: MYALGIA
     Route: 065
  2. PARACETAMOL [Suspect]
     Active Substance: ACETAMINOPHEN
     Indication: MYALGIA
     Route: 065

REACTIONS (10)
  - Blood lactate dehydrogenase increased [Recovered/Resolved]
  - Autoimmune haemolytic anaemia [Recovered/Resolved]
  - Pyrexia [Recovered/Resolved]
  - Reticulocytosis [Recovered/Resolved]
  - Jaundice [Recovered/Resolved]
  - Hypertension [Recovered/Resolved]
  - Asthenia [Recovered/Resolved]
  - Hyperbilirubinaemia [Recovered/Resolved]
  - Haptoglobin [Recovered/Resolved]
  - Tachycardia [Recovered/Resolved]
